FAERS Safety Report 7210441-5 (Version None)
Quarter: 2010Q4

REPORT INFORMATION
  Report Type: 
  Country: None (occurrence: None)
  Receive Date: 20101221
  Receipt Date: 20101210
  Transmission Date: 20110411
  Serious: Yes (Death, Hospitalization)
  Sender: FDA-Public Use
  Company Number: 2010PROUSA00033

PATIENT
  Age: 65 Year
  Sex: Male

DRUGS (27)
  1. PROVENGE [Suspect]
     Indication: PROSTATE CANCER METASTATIC
     Dosage: 250 ML, SINGLE, INTRAVENOUS, 250 ML, SINGLE, INTRAVENOUS, 250 ML, SINGLE, INTRAVENOUS
     Route: 042
     Dates: start: 20100719, end: 20100719
  2. PROVENGE [Suspect]
     Indication: PROSTATE CANCER METASTATIC
     Dosage: 250 ML, SINGLE, INTRAVENOUS, 250 ML, SINGLE, INTRAVENOUS, 250 ML, SINGLE, INTRAVENOUS
     Route: 042
     Dates: start: 20100913, end: 20100913
  3. PROVENGE [Suspect]
     Indication: PROSTATE CANCER METASTATIC
     Dosage: 250 ML, SINGLE, INTRAVENOUS, 250 ML, SINGLE, INTRAVENOUS, 250 ML, SINGLE, INTRAVENOUS
     Route: 042
     Dates: start: 20100924, end: 20100924
  4. PROVENGE [Suspect]
  5. PROVENGE [Suspect]
  6. ALLEGRA [Concomitant]
  7. AVAPRO [Concomitant]
  8. LASIX [Concomitant]
  9. COREG [Concomitant]
  10. SINGULAIR [Concomitant]
  11. VIOXX [Concomitant]
  12. PREDNISONE TAB [Concomitant]
  13. ALDACTONE [Concomitant]
  14. SPIRONOLACTONE [Concomitant]
  15. DARVOCET [Concomitant]
  16. SENNA /00142201/ (SENNA ALEXANDRINA) [Concomitant]
  17. SKELAXIN /00611501/ (METAXALONE) [Concomitant]
  18. PROTONIX [Concomitant]
  19. IRBESARTAN [Concomitant]
  20. DIGOXIN [Concomitant]
  21. SINGULAIR [Concomitant]
  22. AMBIEN [Concomitant]
  23. LOVENOX [Concomitant]
  24. NOVOLIN /00030501/ (INSULIN) [Concomitant]
  25. LANOXIN [Concomitant]
  26. HUMULIN /00646001/ (INSULIN HUMAN) [Concomitant]
  27. LUPRON [Concomitant]

REACTIONS (7)
  - ATRIAL SEPTAL DEFECT [None]
  - BACK PAIN [None]
  - CEREBROVASCULAR ACCIDENT [None]
  - INFLUENZA LIKE ILLNESS [None]
  - MITRAL VALVE INCOMPETENCE [None]
  - STREPTOCOCCAL SEPSIS [None]
  - TRANSIENT ISCHAEMIC ATTACK [None]
